FAERS Safety Report 16836712 (Version 1)
Quarter: 2019Q3

REPORT INFORMATION
  Report Type: Spontaneous
  Country: US (occurrence: US)
  Receive Date: 20190922
  Receipt Date: 20190922
  Transmission Date: 20191005
  Serious: No
  Sender: FDA-Public Use
  Company Number: US-PHARMING-PHAUS2019000507

PATIENT

DRUGS (5)
  1. PDC1-INH [Concomitant]
     Indication: HEREDITARY ANGIOEDEMA WITH C1 ESTERASE INHIBITOR DEFICIENCY
     Dosage: 1000 IU, EVERY 3 DAYS
     Route: 042
     Dates: end: 201708
  2. ECALLANTIDE [Concomitant]
     Active Substance: ECALLANTIDE
     Indication: HEREDITARY ANGIOEDEMA
     Dosage: 30 MG, UNK
     Dates: start: 201609
  3. RUCONEST [Suspect]
     Active Substance: HUMAN C1-ESTERASE INHIBITOR
     Indication: PROPHYLAXIS
  4. RUCONEST [Suspect]
     Active Substance: HUMAN C1-ESTERASE INHIBITOR
     Indication: HEREDITARY ANGIOEDEMA WITH C1 ESTERASE INHIBITOR DEFICIENCY
     Dosage: 3700 IU, EVERY 3 DAYS
     Dates: start: 201712
  5. PDC1-INH [Concomitant]
     Indication: PROPHYLAXIS
     Dosage: 4500 IU, EVERY 3 DAYS
     Route: 058
     Dates: start: 201708

REACTIONS (1)
  - Product use in unapproved indication [Recovering/Resolving]

NARRATIVE: CASE EVENT DATE: 201712
